FAERS Safety Report 12360447 (Version 1)
Quarter: 2016Q2

REPORT INFORMATION
  Report Type: Spontaneous
  Country: GB (occurrence: GB)
  Receive Date: 20160512
  Receipt Date: 20160512
  Transmission Date: 20160815
  Serious: Yes (Other)
  Sender: FDA-Public Use
  Company Number: GB-PFIZER INC-2016249039

PATIENT
  Age: 47 Year
  Sex: Male
  Weight: 99 kg

DRUGS (5)
  1. COCODAMOL [Concomitant]
     Active Substance: ACETAMINOPHEN\CODEINE PHOSPHATE
     Dosage: UNK, AS NEEDED (ONE OR TWO TO BE TAKEN FOUR TIMES DAILY)
     Dates: start: 20141121
  2. NAPROXEN. [Concomitant]
     Active Substance: NAPROXEN
     Indication: PAIN
     Dosage: 1 DF, AS NEEDED (3 TIMES A DAY)
     Dates: start: 20150213
  3. BETAMETHASONE VALERATE. [Concomitant]
     Active Substance: BETAMETHASONE VALERATE
     Indication: HYPERSENSITIVITY
     Dosage: APPLY TO ALLERGIC REACTION.
     Dates: start: 20160427
  4. CALCIPOTRIOL [Concomitant]
     Active Substance: CALCIPOTRIENE
     Dosage: 1 DF, 2X/DAY
     Dates: start: 20141121
  5. PREGABALIN. [Suspect]
     Active Substance: PREGABALIN
     Dosage: UNK
     Dates: start: 20160421

REACTIONS (2)
  - Rash [Recovering/Resolving]
  - Skin reaction [Unknown]

NARRATIVE: CASE EVENT DATE: 20160427
